FAERS Safety Report 7251531-0 (Version None)
Quarter: 2011Q1

REPORT INFORMATION
  Report Type: 
  Country: None (occurrence: None)
  Receive Date: 20110128
  Receipt Date: 20110114
  Transmission Date: 20110831
  Serious: Yes (Hospitalization)
  Sender: FDA-Public Use
  Company Number: US-ELI_LILLY_AND_COMPANY-US201011001293

PATIENT
  Sex: Female

DRUGS (8)
  1. AMIODARONE [Concomitant]
  2. TRAMADOL [Concomitant]
  3. MULTIVITAMIN [Concomitant]
  4. POTASSIUM [Concomitant]
  5. VICODIN [Concomitant]
  6. LASIX [Concomitant]
  7. FORTEO [Suspect]
     Indication: OSTEOPOROSIS
     Dosage: 20 UG, DAILY (1/D)
     Dates: end: 20101101
  8. ASPIRIN [Concomitant]

REACTIONS (5)
  - RESTRICTIVE CARDIOMYOPATHY [None]
  - CARDIAC FAILURE CONGESTIVE [None]
  - MUSCULAR WEAKNESS [None]
  - NAUSEA [None]
  - ARRHYTHMIA [None]
